FAERS Safety Report 18355883 (Version 1)
Quarter: 2020Q4

REPORT INFORMATION
  Report Type: Report from Study
  Country: US (occurrence: US)
  Receive Date: 20201007
  Receipt Date: 20201007
  Transmission Date: 20210114
  Serious: No
  Sender: FDA-Public Use
  Company Number: US-ADVANZ PHARMA-202009009158

PATIENT

DRUGS (2)
  1. HUMIRA [Suspect]
     Active Substance: ADALIMUMAB
     Indication: RHEUMATOID ARTHRITIS
     Dosage: 40 MG,1 IN 2 WK
     Route: 058
     Dates: start: 20200605
  2. HYDROXYCHLOROQUINE [Suspect]
     Active Substance: HYDROXYCHLOROQUINE
     Indication: PRODUCT USED FOR UNKNOWN INDICATION
     Dosage: UNK
     Route: 065
     Dates: end: 2020

REACTIONS (17)
  - Pain in extremity [Unknown]
  - Musculoskeletal stiffness [Unknown]
  - Nasal congestion [Unknown]
  - Nasopharyngitis [Unknown]
  - Muscle tightness [Not Recovered/Not Resolved]
  - Road traffic accident [Unknown]
  - Nasal congestion [Recovered/Resolved]
  - Alopecia [Recovered/Resolved]
  - Pain [Not Recovered/Not Resolved]
  - Feeling abnormal [Unknown]
  - Fatigue [Not Recovered/Not Resolved]
  - Mobility decreased [Not Recovered/Not Resolved]
  - Gait disturbance [Unknown]
  - Headache [Recovering/Resolving]
  - Pain in extremity [Recovering/Resolving]
  - Sneezing [Not Recovered/Not Resolved]
  - Rhinorrhoea [Not Recovered/Not Resolved]

NARRATIVE: CASE EVENT DATE: 2020
